FAERS Safety Report 6314415-8 (Version None)
Quarter: 2009Q3

REPORT INFORMATION
  Report Type: 
  Country: None (occurrence: None)
  Receive Date: 20090819
  Receipt Date: 20090807
  Transmission Date: 20100115
  Serious: Yes (Other)
  Sender: FDA-Public Use
  Company Number: FI-JNJFOC-20090802881

PATIENT
  Age: 63 Year
  Sex: Male
  Weight: 120 kg

DRUGS (3)
  1. REMICADE [Suspect]
     Route: 042
  2. REMICADE [Suspect]
     Indication: PYODERMA GANGRENOSUM
     Route: 042
  3. AZAMUN [Suspect]
     Indication: DRUG USE FOR UNKNOWN INDICATION

REACTIONS (2)
  - HEPATIC ENZYME INCREASED [None]
  - PERINEAL FISTULA [None]
